FAERS Safety Report 5521592-5 (Version None)
Quarter: 2007Q4

REPORT INFORMATION
  Report Type: 
  Country: None (occurrence: None)
  Receive Date: 20071115
  Receipt Date: 20071105
  Transmission Date: 20080405
  Serious: Yes (Hospitalization)
  Sender: FDA-Public Use
  Company Number: 2007-04943

PATIENT
  Age: 23 Year
  Sex: Male

DRUGS (2)
  1. ETOPOSIDE [Suspect]
     Indication: MEDULLOBLASTOMA
     Dosage: 50 MG/M2 Q D X 5 D, Q 3 WEEKS
     Dates: start: 20020101, end: 20020101
  2. CISPLATIN [Suspect]
     Indication: MEDULLOBLASTOMA
     Dosage: 20 MG/M2, Q D X 5 D, Q 3 WEEKS
     Dates: start: 20020101, end: 20020101

REACTIONS (1)
  - TUMOUR LYSIS SYNDROME [None]
